FAERS Safety Report 20502711 (Version 1)
Quarter: 2022Q1

REPORT INFORMATION
  Report Type: Spontaneous
  Country: US (occurrence: None)
  Receive Date: 20220219
  Receipt Date: 20220219
  Transmission Date: 20220423
  Serious: Yes (Disabling)
  Sender: FDA-Public Use
  Company Number: None

PATIENT
  Age: 46 Year
  Sex: Female
  Weight: 63.5 kg

DRUGS (4)
  1. MIRENA [Suspect]
     Active Substance: LEVONORGESTREL
  2. VITAMINS [Concomitant]
     Active Substance: VITAMINS
  3. HERBALS\TURMERIC [Concomitant]
     Active Substance: HERBALS\TURMERIC
  4. FLAXSEED [Concomitant]
     Active Substance: FLAX SEED

REACTIONS (12)
  - Cough [None]
  - Headache [None]
  - Arthralgia [None]
  - Joint swelling [None]
  - Musculoskeletal stiffness [None]
  - Tremor [None]
  - Antinuclear antibody increased [None]
  - Urticaria [None]
  - Hypermobility syndrome [None]
  - Progesterone increased [None]
  - Drug hypersensitivity [None]
  - Embedded device [None]

NARRATIVE: CASE EVENT DATE: 20220114
